FAERS Safety Report 13194771 (Version 1)
Quarter: 2017Q1

REPORT INFORMATION
  Report Type: Spontaneous
  Country: US (occurrence: US)
  Receive Date: 20170207
  Receipt Date: 20170207
  Transmission Date: 20170428
  Serious: No
  Sender: FDA-Public Use
  Company Number: US-JAZZ-2016-US-024565

PATIENT
  Sex: Male

DRUGS (3)
  1. PRIALT [Suspect]
     Active Substance: ZICONOTIDE ACETATE
     Indication: PAIN
     Dosage: 0.004 ?G, QH
     Route: 037
     Dates: start: 2016, end: 2016
  2. LASIX [Suspect]
     Active Substance: FUROSEMIDE
     Indication: PRODUCT USED FOR UNKNOWN INDICATION
  3. PRIALT [Suspect]
     Active Substance: ZICONOTIDE ACETATE
     Dosage: 0.008 ?G, QH
     Route: 037
     Dates: start: 2016

REACTIONS (12)
  - Back pain [Unknown]
  - Neuralgia [Unknown]
  - Peripheral swelling [Unknown]
  - Neck deformity [Unknown]
  - Muscle spasms [Unknown]
  - Myopathy [Unknown]
  - Urine output decreased [Unknown]
  - Aphasia [Unknown]
  - Muscular weakness [Unknown]
  - Surgery [Unknown]
  - Dysphagia [Unknown]
  - Memory impairment [Unknown]
